FAERS Safety Report 17489496 (Version 1)
Quarter: 2020Q1

REPORT INFORMATION
  Report Type: Spontaneous
  Country: JP (occurrence: JP)
  Receive Date: 20200303
  Receipt Date: 20200303
  Transmission Date: 20200409
  Serious: Yes (Life-Threatening, Hospitalization, Other)
  Sender: FDA-Public Use
  Company Number: JP-ASTRAZENECA-2020SE31105

PATIENT
  Age: 72 Year
  Sex: Male
  Weight: 58.5 kg

DRUGS (12)
  1. NEXIUM [Suspect]
     Active Substance: ESOMEPRAZOLE MAGNESIUM
     Indication: PROPHYLAXIS AGAINST GASTROINTESTINAL ULCER
     Route: 048
     Dates: start: 201606, end: 20200115
  2. NOVORAPID [Concomitant]
     Active Substance: INSULIN ASPART
  3. OLMETEC [Concomitant]
     Active Substance: OLMESARTAN MEDOXOMIL
  4. MAGMITT [Concomitant]
     Active Substance: MAGNESIUM OXIDE
  5. VFEND [Suspect]
     Active Substance: VORICONAZOLE
     Indication: BRONCHOPULMONARY ASPERGILLOSIS
     Route: 048
     Dates: start: 20191213, end: 20200115
  6. BACTRAMIN [Suspect]
     Active Substance: SULFAMETHOXAZOLE\TRIMETHOPRIM
     Indication: ANTIFUNGAL PROPHYLAXIS
     Route: 048
     Dates: start: 201505, end: 20200115
  7. PREDNISOLONE. [Concomitant]
     Active Substance: PREDNISOLONE
  8. TRAZENTA [Concomitant]
     Active Substance: LINAGLIPTIN
  9. KAYEXALATE [Concomitant]
     Active Substance: SODIUM POLYSTYRENE SULFONATE
  10. ATORVASTATIN [Concomitant]
     Active Substance: ATORVASTATIN
  11. ATELEC [Concomitant]
     Active Substance: CILNIDIPINE
  12. ALFACALCIDOL [Concomitant]
     Active Substance: ALFACALCIDOL

REACTIONS (3)
  - Agranulocytosis [Recovering/Resolving]
  - Dysstasia [Recovering/Resolving]
  - Septic shock [Recovering/Resolving]

NARRATIVE: CASE EVENT DATE: 20200117
